FAERS Safety Report 12959584 (Version 3)
Quarter: 2017Q1

REPORT INFORMATION
  Report Type: Spontaneous
  Country: CA (occurrence: CA)
  Receive Date: 20161121
  Receipt Date: 20170209
  Transmission Date: 20170428
  Serious: Yes (Other)
  Sender: FDA-Public Use
  Company Number: CA-ASTELLAS-2016US045128

PATIENT
  Age: 64 Year
  Sex: Male

DRUGS (1)
  1. ADVAGRAF [Suspect]
     Active Substance: TACROLIMUS
     Indication: RENAL TRANSPLANT
     Route: 065
     Dates: start: 2014

REACTIONS (3)
  - General physical health deterioration [Unknown]
  - Cerebrovascular accident [Unknown]
  - Dysphagia [Unknown]

NARRATIVE: CASE EVENT DATE: 201611
